FAERS Safety Report 9831409 (Version 2)
Quarter: 2014Q1

REPORT INFORMATION
  Report Type: Spontaneous
  Country: FR (occurrence: FR)
  Receive Date: 20140121
  Receipt Date: 20140121
  Transmission Date: 20141002
  Serious: Yes (Hospitalization, Other)
  Sender: FDA-Public Use
  Company Number: FR-BRISTOL-MYERS SQUIBB COMPANY-19925569

PATIENT
  Age: 87 Year
  Sex: Female

DRUGS (12)
  1. COUMADINE [Suspect]
     Indication: PERICARDITIS
     Dosage: SCORED TABLET,1DF: ONE TO ONE AND A HALF TAB,03SEP-08NOV13,20NOV13-03DEC13
     Route: 048
     Dates: start: 20131120, end: 20131203
  2. CORTANCYL [Concomitant]
     Dosage: INCLUDED 12.5MG
     Dates: end: 20131205
  3. CANDESARTAN [Concomitant]
     Dosage: CANDESARTAN 4MG,1DF:1TAB
  4. AROMASIN [Concomitant]
     Dosage: 1DF: 1TAB
  5. DILTIAZEM HCL [Concomitant]
     Dosage: DILTIAZEM 90MG,1DF:1TAB
  6. CREON [Concomitant]
     Dosage: CREON 25000U,1DF: 1TAB IN THE MORNING AND IN THE EVENING
  7. FUROSEMIDE [Concomitant]
     Dosage: FUROSEMIDE 20MG,1DF: 1TAB IN THE MORNING
  8. ESOMEPRAZOLE [Concomitant]
     Dosage: 40MG,1DF: 1TAB IN THE EVENING
  9. OROCAL [Concomitant]
     Dosage: OROCAL D3 500/400,1DF: 2TABS/DAY
  10. SYMBICORT [Concomitant]
     Dosage: SYMBICORT 400/12 MICRO G,1DF: 2 INHALATIONS IN THE MORNING 7 IN THE EVENING
  11. PARACETAMOL TABS 500 MG [Concomitant]
     Indication: PAIN
     Dosage: 1DF: 6 TABS
  12. KARDEGIC [Concomitant]
     Dosage: REINTRODUCED TO 75 MG/D ORALLY
     Dates: start: 20131108, end: 20131120

REACTIONS (4)
  - Gastric haemorrhage [Recovered/Resolved]
  - Gastritis [Recovered/Resolved]
  - Anaemia [Recovered/Resolved]
  - International normalised ratio increased [Recovered/Resolved]
